FAERS Safety Report 7989241-4 (Version None)
Quarter: 2011Q4

REPORT INFORMATION
  Report Type: 
  Country: None (occurrence: None)
  Receive Date: 20111007
  Receipt Date: 20110714
  Transmission Date: 20120403
  Serious: No
  Sender: FDA-Public Use
  Company Number: 2011HGS-002381

PATIENT
  Age: 28 Year
  Sex: Female
  Weight: 60.782 kg

DRUGS (6)
  1. BENLYSTA [Suspect]
     Indication: SYSTEMIC LUPUS ERYTHEMATOSUS
     Dosage: 10 MG/KG, 1 IN 14 D, INTRAVENOUS DRIP
     Route: 041
     Dates: start: 20110609
  2. BIOTIN (BIOTIN) (BIOTIN) [Concomitant]
  3. BABY ASPIRIN (ACETYLSALICYLIC ACID) (ACETYLICYLIC ACID) [Concomitant]
  4. FOLIC ACID [Concomitant]
  5. PRENATAL VITAMIN (PRENATAL VITAMINS) (ASCORBIC ACID, BIOTIN, TOCOPHERO [Concomitant]
  6. PREDNISONE [Concomitant]

REACTIONS (7)
  - SWELLING FACE [None]
  - INFUSION RELATED REACTION [None]
  - PAIN IN EXTREMITY [None]
  - WEIGHT INCREASED [None]
  - VOMITING [None]
  - NAUSEA [None]
  - JOINT SWELLING [None]
